FAERS Safety Report 8120980-0 (Version None)
Quarter: 2012Q1

REPORT INFORMATION
  Report Type: 
  Country: None (occurrence: None)
  Receive Date: 20120203
  Receipt Date: 20120126
  Transmission Date: 20120608
  Serious: Yes (Death, Hospitalization)
  Sender: FDA-Public Use
  Company Number: 2012SP004170

PATIENT
  Age: 65 Year
  Sex: Female

DRUGS (2)
  1. POSACONAZOLE [Suspect]
     Indication: PROPHYLAXIS
     Dosage: 200 MG;TID
     Dates: start: 20090219, end: 20090220
  2. POSACONAZOLE [Suspect]
     Indication: PROPHYLAXIS
     Dosage: 200 MG;TID
     Dates: start: 20090122, end: 20090209

REACTIONS (2)
  - FUNGAL INFECTION [None]
  - RESPIRATORY FAILURE [None]
